FAERS Safety Report 5145599-5 (Version None)
Quarter: 2006Q4

REPORT INFORMATION
  Report Type: 
  Country: None (occurrence: None)
  Receive Date: 20061107
  Receipt Date: 20061030
  Transmission Date: 20070319
  Serious: Yes (Hospitalization, Other)
  Sender: FDA-Public Use
  Company Number: GB-SANOFI-SYNTHELABO-A01200609241

PATIENT
  Age: 66 Year
  Sex: Female
  Weight: 76 kg

DRUGS (2)
  1. CAPECITABINE [Concomitant]
     Route: 048
     Dates: start: 20061011
  2. ELOXATIN [Suspect]
     Route: 042
     Dates: start: 20061011, end: 20061011

REACTIONS (6)
  - EYE DISORDER [None]
  - EYELID FUNCTION DISORDER [None]
  - HYPOAESTHESIA [None]
  - PARAESTHESIA [None]
  - SENSORY DISTURBANCE [None]
  - THROAT IRRITATION [None]
